FAERS Safety Report 23363254 (Version 1)
Quarter: 2024Q1

REPORT INFORMATION
  Report Type: Other
  Country: None (occurrence: US)
  Receive Date: 20240103
  Receipt Date: 20240103
  Transmission Date: 20240410
  Serious: Yes (Other)
  Sender: FDA-Public Use
  Company Number: US-WES Pharma Inc-2150080

PATIENT
  Age: 47 Year
  Sex: Female

DRUGS (3)
  1. METHYLPHENIDATE HYDROCHLORIDE [Suspect]
     Active Substance: METHYLPHENIDATE HYDROCHLORIDE
     Indication: Narcolepsy
     Route: 065
  2. ARIPIPRAZOLE [Suspect]
     Active Substance: ARIPIPRAZOLE
     Route: 065
  3. MODAFINIL [Suspect]
     Active Substance: MODAFINIL
     Route: 065

REACTIONS (2)
  - Electrocardiogram QT prolonged [Unknown]
  - Syncope [Unknown]
